FAERS Safety Report 5454005-2 (Version None)
Quarter: 2007Q3

REPORT INFORMATION
  Report Type: 
  Country: None (occurrence: None)
  Receive Date: 20070917
  Receipt Date: 20070910
  Transmission Date: 20080115
  Serious: Yes (Hospitalization)
  Sender: FDA-Public Use
  Company Number: US-ASTRAZENECA-2007UW21539

PATIENT
  Age: 22911 Day
  Sex: Female
  Weight: 64.9 kg

DRUGS (1)
  1. IRESSA [Suspect]
     Indication: SQUAMOUS CELL CARCINOMA
     Route: 048
     Dates: start: 20070417, end: 20070904

REACTIONS (1)
  - PHARYNGEAL HAEMORRHAGE [None]
